FAERS Safety Report 7709315-2 (Version None)
Quarter: 2011Q3

REPORT INFORMATION
  Report Type: 
  Country: None (occurrence: None)
  Receive Date: 20110819
  Receipt Date: 20110812
  Transmission Date: 20111222
  Serious: Yes (Hospitalization)
  Sender: FDA-Public Use
  Company Number: DSA_47085_2011

PATIENT
  Sex: Female

DRUGS (10)
  1. PAXIL [Concomitant]
  2. VITAMIN E [Concomitant]
  3. VITAMIN D [Concomitant]
  4. TYLENOL REGULAR [Concomitant]
  5. CELEXA [Concomitant]
  6. HUMIRA [Concomitant]
  7. ARICEPT [Concomitant]
  8. PREVACID [Concomitant]
  9. XENAZINE [Suspect]
     Indication: TARDIVE DYSKINESIA
     Dosage: (12.5 MG TID ORAL)
     Route: 048
     Dates: start: 20110525
  10. SEROQUEL [Concomitant]

REACTIONS (18)
  - OESOPHAGEAL PERFORATION [None]
  - INSOMNIA [None]
  - MUSCULOSKELETAL STIFFNESS [None]
  - HAEMORRHAGE [None]
  - COUGH [None]
  - HAEMATOCHEZIA [None]
  - HYPERTONIC BLADDER [None]
  - CARDIAC FLUTTER [None]
  - ANXIETY [None]
  - DYSPNOEA [None]
  - FATIGUE [None]
  - DYSPHAGIA [None]
  - HYPOPHAGIA [None]
  - MUSCULAR WEAKNESS [None]
  - DIVERTICULUM [None]
  - CARDIAC ARREST [None]
  - PALPITATIONS [None]
  - AGITATION [None]
